FAERS Safety Report 10427829 (Version 2)
Quarter: 2014Q3

REPORT INFORMATION
  Report Type: Spontaneous
  Country: US (occurrence: US)
  Receive Date: 20140903
  Receipt Date: 20140903
  Transmission Date: 20150326
  Serious: Yes (Other)
  Sender: FDA-Public Use
  Company Number: US-009507513-2008-178051-NL

PATIENT
  Sex: Female
  Weight: 58.1 kg

DRUGS (12)
  1. CEPHALEXIN. [Concomitant]
     Active Substance: CEPHALEXIN
     Dosage: UNIT DOSE: 500 MG
  2. NUVARING [Suspect]
     Active Substance: ETHINYL ESTRADIOL\ETONOGESTREL
     Indication: CONTRACEPTION
     Dosage: CONTINUING: NO
     Route: 067
     Dates: start: 200604, end: 200801
  3. LEVOTHYROXINE SODIUM. [Concomitant]
     Active Substance: LEVOTHYROXINE SODIUM
     Dosage: .112 MG, QD
     Dates: start: 20071117
  4. PROVENTIL [Concomitant]
     Active Substance: ALBUTEROL
     Indication: ASTHMA
     Dosage: UNIT DOSE: 90 UG
     Route: 055
  5. BENADRYL [Concomitant]
     Active Substance: DIPHENHYDRAMINE HYDROCHLORIDE
     Indication: HYPERSENSITIVITY
     Dosage: ACTION TAKEN: UNK, FREQUENCY: QD
  6. METHIMAZOLE. [Concomitant]
     Active Substance: METHIMAZOLE
     Dosage: 10 MG, QD
     Dates: start: 20071024
  7. SYNTHROID [Concomitant]
     Active Substance: LEVOTHYROXINE SODIUM
     Dosage: ACTION TAKEN: UNK, UNIT DOSE: 100 UG
     Dates: start: 200711
  8. TYLENOL [Concomitant]
     Active Substance: ACETAMINOPHEN
     Indication: ANALGESIC THERAPY
     Dosage: ACTION TAKEN: UNK
  9. ACETAMINOPHEN (+) PROPOXYPHENE NAPSYLATE [Concomitant]
     Dosage: DOSE TEXT: UNIT DOSE 110 MG PROPOXY, 650 MG ACETAMINOPHEN
  10. SSKI [Concomitant]
     Active Substance: POTASSIUM IODIDE
     Dosage: UNIT DOSE: 1000 MG/ML
  11. METOPROLOL TARTRATE. [Concomitant]
     Active Substance: METOPROLOL TARTRATE
     Dosage: METROPROLOL ER
     Dates: start: 20070803
  12. NADOLOL. [Concomitant]
     Active Substance: NADOLOL
     Dosage: 40 MG, QD
     Dates: start: 20070831

REACTIONS (11)
  - Pharyngitis [Recovered/Resolved]
  - Cerebrovascular accident [Recovered/Resolved with Sequelae]
  - Asthma [Not Recovered/Not Resolved]
  - Basedow^s disease [Recovering/Resolving]
  - Ovarian cyst [Unknown]
  - Amenorrhoea [Unknown]
  - Aphthous stomatitis [Recovered/Resolved]
  - Acute sinusitis [Recovered/Resolved]
  - Menstruation irregular [Unknown]
  - Upper respiratory tract infection [Unknown]
  - Speech disorder [Unknown]

NARRATIVE: CASE EVENT DATE: 20061130
